FAERS Safety Report 17505787 (Version 2)
Quarter: 2020Q1

REPORT INFORMATION
  Report Type: Report from Study
  Country: JP (occurrence: JP)
  Receive Date: 20200305
  Receipt Date: 20200331
  Transmission Date: 20200409
  Serious: Yes (Hospitalization)
  Sender: FDA-Public Use
  Company Number: JP-BAUSCH-BL-2020-006817

PATIENT
  Age: 29 Year
  Sex: Male
  Weight: 53.6 kg

DRUGS (1)
  1. FE 999315 000234 [Suspect]
     Active Substance: BUDESONIDE
     Indication: COLITIS ULCERATIVE
     Dosage: 12:52:00; DURATION: 1 MONTH 19 DAYS 11 HRS 8 MIN
     Route: 065
     Dates: start: 20191225, end: 20200214

REACTIONS (1)
  - Enteritis infectious [Recovered/Resolved]

NARRATIVE: CASE EVENT DATE: 20200213
